FAERS Safety Report 22522706 (Version 2)
Quarter: 2023Q2

REPORT INFORMATION
  Report Type: Spontaneous
  Country: ES (occurrence: ES)
  Receive Date: 20230605
  Receipt Date: 20230615
  Transmission Date: 20230722
  Serious: Yes (Other)
  Sender: FDA-Public Use
  Company Number: ES-002147023-NVSC2023ES126592

PATIENT
  Age: 91 Year
  Sex: Male

DRUGS (2)
  1. BEOVU [Suspect]
     Active Substance: BROLUCIZUMAB-DBLL
     Indication: Neovascular age-related macular degeneration
     Dosage: 6 MG, INJECTION NOS (LEFT EYE)
     Route: 031
     Dates: start: 20230511
  2. LUCENTIS [Concomitant]
     Active Substance: RANIBIZUMAB
     Indication: Age-related macular degeneration
     Dosage: UNK
     Route: 065

REACTIONS (13)
  - Periorbital cellulitis [Recovered/Resolved]
  - Periorbital oedema [Recovered/Resolved]
  - Erythema of eyelid [Recovered/Resolved]
  - Eye discharge [Recovering/Resolving]
  - Eye pain [Recovered/Resolved]
  - Vitritis [Recovering/Resolving]
  - Retinal occlusive vasculitis [Recovering/Resolving]
  - Iridocyclitis [Recovering/Resolving]
  - Visual impairment [Recovering/Resolving]
  - Herpes zoster [Unknown]
  - Skin lesion [Unknown]
  - Oral herpes [Unknown]
  - Nasopharyngitis [Unknown]

NARRATIVE: CASE EVENT DATE: 20230521
